FAERS Safety Report 9831727 (Version 1)
Quarter: 2014Q1

REPORT INFORMATION
  Report Type: Spontaneous
  Country: FR (occurrence: FR)
  Receive Date: 20140121
  Receipt Date: 20140121
  Transmission Date: 20141002
  Serious: Yes (Death, Other)
  Sender: FDA-Public Use
  Company Number: FR-JNJFOC-20140108465

PATIENT
  Age: 65 Year
  Sex: Female

DRUGS (6)
  1. DOXORUBICIN [Suspect]
     Indication: PLASMA CELL LEUKAEMIA
     Dosage: REGIMEN #1
     Route: 042
     Dates: start: 20120421, end: 20120604
  2. BORTEZOMIB [Suspect]
     Indication: PLASMA CELL LEUKAEMIA
     Route: 042
     Dates: start: 20120418, end: 20120707
  3. DEXAMETHASONE [Suspect]
     Indication: PLASMA CELL LEUKAEMIA
     Dosage: REGIMEN #1
     Route: 048
     Dates: start: 20120418, end: 20120702
  4. ENDOXAN [Suspect]
     Indication: PLASMA CELL LEUKAEMIA
     Dosage: REGIMEN #1
     Route: 048
     Dates: start: 20120514, end: 20120716
  5. LENALIDOMIDE [Suspect]
     Indication: PLASMA CELL LEUKAEMIA
     Dosage: REGIMEN #1
     Route: 065
  6. MELPHALAN [Suspect]
     Indication: PLASMA CELL LEUKAEMIA
     Dosage: REGIMEN #1
     Route: 065

REACTIONS (2)
  - Sepsis [Fatal]
  - Off label use [Unknown]
